FAERS Safety Report 21283223 (Version 1)
Quarter: 2022Q3

REPORT INFORMATION
  Report Type: Spontaneous
  Country: US (occurrence: None)
  Receive Date: 20220901
  Receipt Date: 20220901
  Transmission Date: 20221026
  Serious: No
  Sender: FDA-Public Use
  Company Number: None

PATIENT

DRUGS (3)
  1. WARFARIN SODIUM [Suspect]
     Active Substance: WARFARIN SODIUM
     Route: 048
  2. ELIQUIS [Suspect]
     Active Substance: APIXABAN
  3. KCENTRA [Suspect]
     Active Substance: COAGULATION FACTOR IX HUMAN\COAGULATION FACTOR VII HUMAN\COAGULATION FACTOR X HUMAN\PROTEIN C\PROTEI

REACTIONS (10)
  - Gastrointestinal haemorrhage [None]
  - International normalised ratio increased [None]
  - Red blood cell transfusion [None]
  - Blood loss anaemia [None]
  - Acute kidney injury [None]
  - Hypovolaemic shock [None]
  - Coagulopathy [None]
  - Product prescribing error [None]
  - Inappropriate schedule of product administration [None]
  - Product communication issue [None]
